FAERS Safety Report 10051656 (Version 1)
Quarter: 2014Q1

REPORT INFORMATION
  Report Type: Spontaneous
  Country: US (occurrence: None)
  Receive Date: 20140331
  Receipt Date: 20140331
  Transmission Date: 20141002
  Serious: Yes (Other)
  Sender: FDA-Public Use
  Company Number: BR14-104-AE

PATIENT
  Sex: Female

DRUGS (3)
  1. SPIRONOLACTONE [Suspect]
     Route: 048
  2. FLUTICASONE (APOTEX) [Concomitant]
  3. TOPIRAMATE [Concomitant]

REACTIONS (5)
  - Anaphylactic reaction [None]
  - Tremor [None]
  - Confusional state [None]
  - Migraine [None]
  - Rash [None]
